FAERS Safety Report 5885931-8 (Version None)
Quarter: 2008Q3

REPORT INFORMATION
  Report Type: 
  Country: None (occurrence: None)
  Receive Date: 20080917
  Receipt Date: 20080911
  Transmission Date: 20090109
  Serious: Yes (Hospitalization)
  Sender: FDA-Public Use
  Company Number: US-ABBOTT-08P-163-0475831-00

PATIENT
  Sex: Female
  Weight: 63.56 kg

DRUGS (8)
  1. HUMIRA [Suspect]
     Indication: RHEUMATOID ARTHRITIS
     Route: 050
     Dates: start: 20060101
  2. NICOTINE POLACRILEX [Concomitant]
     Indication: EX-TOBACCO USER
     Route: 062
     Dates: start: 20080823
  3. SERETIDE [Concomitant]
     Indication: ASTHMA
     Route: 055
  4. ALBUTEROL SPIROS [Concomitant]
     Indication: ASTHMA
     Route: 055
  5. CETIRIZINE HYDROCHLORIDE [Concomitant]
     Indication: ASTHMA
     Route: 048
  6. CLONAZEPAM [Concomitant]
     Indication: ANXIETY
     Route: 048
  7. LEVOTHYROXINE SODIUM [Concomitant]
     Indication: THYROID DISORDER
     Route: 048
  8. ASPIRIN [Concomitant]
     Indication: ANTICOAGULANT THERAPY
     Route: 048

REACTIONS (5)
  - CALCULUS URINARY [None]
  - DIARRHOEA [None]
  - HEPATITIS VIRAL [None]
  - INFECTIOUS MONONUCLEOSIS [None]
  - VASCULITIS [None]
